FAERS Safety Report 8789008 (Version 1)
Quarter: 2012Q4

REPORT INFORMATION
  Report Type: 
  Country: US (occurrence: US)
  Receive Date: 20120916
  Receipt Date: 20120916
  Transmission Date: 20130627
  Serious: Yes (Other)
  Sender: FDA-Public Use
  Company Number: US-009507513-1209USA003084

PATIENT

DRUGS (3)
  1. ISENTRESS [Suspect]
     Route: 048
  2. ZIAGEN [Suspect]
     Dosage: 600 mg, qd
     Route: 048
  3. EPIVIR [Suspect]
     Route: 048

REACTIONS (2)
  - Liver function test abnormal [Unknown]
  - Glucose urine present [Unknown]
